FAERS Safety Report 10774823 (Version 1)
Quarter: 2015Q1

REPORT INFORMATION
  Report Type: Spontaneous
  Country: US (occurrence: None)
  Receive Date: 20150206
  Receipt Date: 20150206
  Transmission Date: 20150721
  Serious: Yes (Hospitalization)
  Sender: FDA-Public Use
  Company Number: HYP201406-000037

PATIENT
  Age: 4 Month
  Sex: Male
  Weight: 8.3 kg

DRUGS (2)
  1. RAVICTI [Suspect]
     Active Substance: GLYCEROL PHENYLBUTYRATE
     Indication: UREA CYCLE ENZYME DEFICIENCY
     Route: 048
     Dates: start: 20140422, end: 20140518
  2. CITRULLINE (CITRULLINE) [Concomitant]

REACTIONS (1)
  - Hyperammonaemia [None]

NARRATIVE: CASE EVENT DATE: 20140516
